FAERS Safety Report 10520133 (Version 1)
Quarter: 2014Q4

REPORT INFORMATION
  Report Type: Spontaneous
  Country: GB (occurrence: GB)
  Receive Date: 20141015
  Receipt Date: 20141015
  Transmission Date: 20150528
  Serious: Yes (Other)
  Sender: FDA-Public Use
  Company Number: GB-ASTRAZENECA-2014SE75719

PATIENT
  Sex: Male

DRUGS (1)
  1. BRILIQUE [Suspect]
     Active Substance: TICAGRELOR
     Dosage: LOADING DOSE 180 MG
     Route: 048
     Dates: start: 20141004

REACTIONS (1)
  - Anaphylactic reaction [Unknown]

NARRATIVE: CASE EVENT DATE: 20141007
